FAERS Safety Report 12633924 (Version 1)
Quarter: 2016Q3

REPORT INFORMATION
  Report Type: Spontaneous
  Country: JP (occurrence: JP)
  Receive Date: 20160808
  Receipt Date: 20160808
  Transmission Date: 20161109
  Serious: Yes (Other)
  Sender: FDA-Public Use
  Company Number: JP-BAYER-2016-146608

PATIENT
  Age: 34 Year
  Sex: Female

DRUGS (1)
  1. BAYASPIRIN [Suspect]
     Active Substance: ASPIRIN
     Dosage: UNK
     Route: 048

REACTIONS (8)
  - Product use issue [None]
  - Uterine contractions during pregnancy [Recovered/Resolved]
  - Disseminated intravascular coagulation [None]
  - Post procedural haemorrhage [None]
  - Maternal exposure during pregnancy [Recovered/Resolved]
  - Premature separation of placenta [None]
  - Abdominal pain [None]
  - Premature delivery [None]
